FAERS Safety Report 9336671 (Version 2)
Quarter: 2013Q4

REPORT INFORMATION
  Report Type: Spontaneous
  Country: DK (occurrence: DK)
  Receive Date: 20130607
  Receipt Date: 20131210
  Transmission Date: 20140711
  Serious: Yes (Other)
  Sender: FDA-Public Use
  Company Number: PHHY2013DK057337

PATIENT
  Age: 65 Year
  Sex: Male

DRUGS (4)
  1. ZOMETA [Suspect]
     Indication: METASTASES TO BONE
     Dosage: 4 MG, PER 100ML
     Route: 042
     Dates: start: 20071008, end: 201107
  2. ZOLADEX [Concomitant]
     Dosage: UNK (EVERY 12 WEEK)
  3. SIMVASTATIN [Concomitant]
     Dosage: UNK UKN, QD
  4. ASASANTIN [Concomitant]
     Dosage: UNK (TWICE DAILY)

REACTIONS (8)
  - Osteonecrosis of jaw [Recovered/Resolved with Sequelae]
  - Gingivitis [Unknown]
  - Purulent discharge [Unknown]
  - Abscess [Unknown]
  - Bone lesion [Unknown]
  - Pain in jaw [Unknown]
  - Erythema [Unknown]
  - Swelling [Unknown]
